FAERS Safety Report 23972041 (Version 1)
Quarter: 2024Q2

REPORT INFORMATION
  Report Type: Spontaneous
  Country: US (occurrence: US)
  Receive Date: 20240613
  Receipt Date: 20240613
  Transmission Date: 20240716
  Serious: Yes (Other)
  Sender: FDA-Public Use
  Company Number: US-SEPTODONT-2024018718

PATIENT
  Age: 24 Year
  Sex: Male

DRUGS (1)
  1. SEPTOCAINE [Suspect]
     Active Substance: ARTICAINE HYDROCHLORIDE\EPINEPHRINE BITARTRATE
     Indication: Dental local anaesthesia
     Dosage: 1 CARPULE.
     Route: 004

REACTIONS (3)
  - Generalised tonic-clonic seizure [Unknown]
  - Respiratory arrest [Unknown]
  - Urinary incontinence [Unknown]
